FAERS Safety Report 25536874 (Version 2)
Quarter: 2025Q3

REPORT INFORMATION
  Report Type: Spontaneous
  Country: US (occurrence: US)
  Receive Date: 20250710
  Receipt Date: 20250822
  Transmission Date: 20251020
  Serious: Yes (Other)
  Sender: BAXTER
  Company Number: US-BAXTER-2025BAX017888

PATIENT
  Sex: Male

DRUGS (2)
  1. MYXREDLIN [Suspect]
     Active Substance: INSULIN HUMAN
     Route: 042
     Dates: start: 20250702
  2. MYXREDLIN [Suspect]
     Active Substance: INSULIN HUMAN
     Route: 042
     Dates: start: 20250702

REACTIONS (1)
  - Drug ineffective [Unknown]

NARRATIVE: CASE EVENT DATE: 20250702
